FAERS Safety Report 5152457-9 (Version None)
Quarter: 2006Q4

REPORT INFORMATION
  Report Type: 
  Country: None (occurrence: None)
  Receive Date: 20061109
  Receipt Date: 20061026
  Transmission Date: 20070319
  Serious: Yes (Death, Other)
  Sender: FDA-Public Use
  Company Number: GXKR2006JP06757

PATIENT
  Age: 67 Year
  Sex: Male

DRUGS (1)
  1. RIFAMPICIN [Suspect]

REACTIONS (2)
  - LIVER DISORDER [None]
  - TOXIC SKIN ERUPTION [None]
